FAERS Safety Report 24386570 (Version 1)
Quarter: 2024Q4

REPORT INFORMATION
  Report Type: Report from Study
  Country: US (occurrence: US)
  Receive Date: 20241002
  Receipt Date: 20241002
  Transmission Date: 20250115
  Serious: Yes (Other)
  Sender: ROCHE
  Company Number: US-ROCHE-10000093050

PATIENT
  Age: 6 Year
  Sex: Female
  Weight: 10.8 kg

DRUGS (1)
  1. EVRYSDI [Suspect]
     Active Substance: RISDIPLAM
     Indication: Spinal muscular atrophy
     Dosage: 3.6 ML
     Route: 050

REACTIONS (3)
  - SARS-CoV-2 test positive [Recovered/Resolved]
  - Illness [Recovered/Resolved]
  - Dependence on respirator [Unknown]
